FAERS Safety Report 9052898 (Version 2)
Quarter: 2013Q1

REPORT INFORMATION
  Report Type: Spontaneous
  Country: RU (occurrence: RU)
  Receive Date: 20130207
  Receipt Date: 20130226
  Transmission Date: 20140127
  Serious: Yes (Death, Hospitalization)
  Sender: FDA-Public Use
  Company Number: RU-B.I. PHARMACEUTICALS,INC./RIDGEFIELD-2013-AP-00102AP

PATIENT
  Age: 39 Year
  Sex: Female

DRUGS (3)
  1. PRADAXA [Suspect]
     Indication: VENOUS THROMBOSIS
     Dosage: 220 MG
     Route: 048
     Dates: start: 20121228, end: 20130104
  2. CLEXANE [Concomitant]
     Indication: THROMBOSIS
     Dosage: 80 MG
     Route: 058
     Dates: start: 20130105, end: 20130112
  3. OMEZ [Concomitant]
     Indication: PROPHYLAXIS
     Dosage: 20 MG
     Route: 048
     Dates: start: 20130109, end: 20130112

REACTIONS (5)
  - Pulmonary embolism [Fatal]
  - Dry gangrene [Unknown]
  - Tachycardia [Unknown]
  - Intracardiac thrombus [Unknown]
  - Arterial thrombosis [Unknown]
